FAERS Safety Report 7601327-2 (Version None)
Quarter: 2011Q3

REPORT INFORMATION
  Report Type: 
  Country: None (occurrence: None)
  Receive Date: 20110711
  Receipt Date: 20110630
  Transmission Date: 20111222
  Serious: Yes (Other)
  Sender: FDA-Public Use
  Company Number: AR-JNJFOC-20110506893

PATIENT
  Age: 44 Year
  Sex: Female
  Weight: 90 kg

DRUGS (2)
  1. TRANQUINAL [Concomitant]
     Indication: PRODUCT USED FOR UNKNOWN INDICATION
     Route: 048
  2. NICOTINE [Suspect]
     Indication: PRODUCT USED FOR UNKNOWN INDICATION
     Route: 048
     Dates: start: 20100909

REACTIONS (3)
  - GASTROINTESTINAL HAEMORRHAGE [None]
  - INTENTIONAL DRUG MISUSE [None]
  - MEDICATION ERROR [None]
